FAERS Safety Report 14151725 (Version 2)
Quarter: 2017Q4

REPORT INFORMATION
  Report Type: Spontaneous
  Country: US (occurrence: US)
  Receive Date: 20171102
  Receipt Date: 20171213
  Transmission Date: 20180321
  Serious: Yes (Hospitalization)
  Sender: FDA-Public Use
  Company Number: US-ASTRAZENECA-2017SF10540

PATIENT
  Age: 76 Year
  Sex: Male

DRUGS (3)
  1. PULMICORT FLEXHALER [Suspect]
     Active Substance: BUDESONIDE
     Indication: ASTHMA
     Dosage: 90.0UG UNKNOWN
     Route: 055
     Dates: start: 2012
  2. PULMICORT FLEXHALER [Suspect]
     Active Substance: BUDESONIDE
     Indication: ASTHMA
     Dosage: 90.0UG UNKNOWN
     Route: 055
     Dates: start: 201707
  3. PROAIR HFA [Concomitant]
     Active Substance: ALBUTEROL SULFATE
     Dosage: UNKNOWN
     Route: 055

REACTIONS (3)
  - Drug ineffective [Unknown]
  - Device issue [Unknown]
  - Asthma [Unknown]

NARRATIVE: CASE EVENT DATE: 201707
